FAERS Safety Report 8062892-7 (Version None)
Quarter: 2012Q1

REPORT INFORMATION
  Report Type: 
  Country: None (occurrence: None)
  Receive Date: 20120123
  Receipt Date: 20120123
  Transmission Date: 20120608
  Serious: Yes (Other)
  Sender: FDA-Public Use
  Company Number: None

PATIENT
  Sex: Male
  Weight: 75.749 kg

DRUGS (1)
  1. ZYTIGA [Suspect]
     Indication: PROSTATE CANCER
     Dosage: 1000MG
     Route: 048
     Dates: start: 20111202, end: 20120120

REACTIONS (3)
  - LACRIMATION INCREASED [None]
  - EYE MOVEMENT DISORDER [None]
  - VISION BLURRED [None]
